FAERS Safety Report 5779037-6 (Version None)
Quarter: 2008Q2

REPORT INFORMATION
  Report Type: 
  Country: None (occurrence: None)
  Receive Date: 20080613
  Receipt Date: 20070517
  Transmission Date: 20081010
  Serious: Yes (Hospitalization)
  Sender: FDA-Public Use
  Company Number: PHEH2007US07601

PATIENT

DRUGS (1)
  1. EXELON [Suspect]

REACTIONS (2)
  - GASTROINTESTINAL DISORDER [None]
  - RENAL FAILURE ACUTE [None]
